FAERS Safety Report 15703463 (Version 1)
Quarter: 2018Q4

REPORT INFORMATION
  Report Type: Spontaneous
  Country: US (occurrence: US)
  Receive Date: 20181127
  Receipt Date: 20181127
  Transmission Date: 20190205
  Serious: Yes (Hospitalization)
  Sender: FDA-Public Use
  Company Number: None

PATIENT
  Age: 39 Year
  Sex: Female
  Weight: 49.5 kg

DRUGS (2)
  1. VANCOMYCIN [Suspect]
     Active Substance: VANCOMYCIN
     Indication: CELLULITIS
     Route: 042
     Dates: start: 20150603, end: 20150603
  2. VANCOMYCIN [Suspect]
     Active Substance: VANCOMYCIN
     Indication: LYMPHANGITIS
     Route: 042
     Dates: start: 20150603, end: 20150603

REACTIONS (1)
  - Uterine pain [None]

NARRATIVE: CASE EVENT DATE: 20150603
